FAERS Safety Report 20905239 (Version 1)
Quarter: 2022Q2

REPORT INFORMATION
  Report Type: Spontaneous
  Country: GB (occurrence: GB)
  Receive Date: 20220602
  Receipt Date: 20220602
  Transmission Date: 20220720
  Serious: Yes (Hospitalization)
  Sender: FDA-Public Use
  Company Number: GB-VIIV HEALTHCARE LIMITED-GB2022EME084851

PATIENT

DRUGS (2)
  1. DOVATO [Suspect]
     Active Substance: DOLUTEGRAVIR SODIUM\LAMIVUDINE
     Indication: Product used for unknown indication
     Dosage: UNK
  2. DORAVIRINE [Suspect]
     Active Substance: DORAVIRINE
     Indication: Product used for unknown indication
     Dosage: UNK

REACTIONS (2)
  - Hospitalisation [Unknown]
  - Alanine aminotransferase increased [Recovering/Resolving]
